FAERS Safety Report 18144856 (Version 1)
Quarter: 2020Q3

REPORT INFORMATION
  Report Type: Spontaneous
  Country: US (occurrence: US)
  Receive Date: 20200813
  Receipt Date: 20200813
  Transmission Date: 20201103
  Serious: No
  Sender: FDA-Public Use
  Company Number: None

PATIENT
  Age: 80 Year
  Sex: Female
  Weight: 75.15 kg

DRUGS (12)
  1. CALCIUM CITRATE [Concomitant]
     Active Substance: CALCIUM CITRATE
  2. MELOXICAM. [Concomitant]
     Active Substance: MELOXICAM
  3. JAKAFI [Suspect]
     Active Substance: RUXOLITINIB
     Route: 048
  4. ALLOPURINOL. [Concomitant]
     Active Substance: ALLOPURINOL
  5. MAGNESIUM [Concomitant]
     Active Substance: MAGNESIUM
  6. PEPCID [Concomitant]
     Active Substance: FAMOTIDINE
  7. TORSEMIDE. [Concomitant]
     Active Substance: TORSEMIDE
  8. FAMOTIDINE. [Concomitant]
     Active Substance: FAMOTIDINE
  9. VITAMIN C [Concomitant]
     Active Substance: ASCORBIC ACID
  10. CARVEDILOL. [Concomitant]
     Active Substance: CARVEDILOL
  11. VITAMIN D [Concomitant]
     Active Substance: VITAMIN D NOS
  12. ASPIRIN. [Concomitant]
     Active Substance: ASPIRIN

REACTIONS (1)
  - Cellulitis [None]
